FAERS Safety Report 10546386 (Version 2)
Quarter: 2014Q4

REPORT INFORMATION
  Report Type: Report from Study
  Country: US (occurrence: US)
  Receive Date: 20141027
  Receipt Date: 20141027
  Transmission Date: 20150529
  Serious: No
  Sender: FDA-Public Use
  Company Number: US-ABBVIE-14P-163-1204714-00

PATIENT
  Age: 39 Year
  Sex: Female

DRUGS (3)
  1. LUPRON DEPOT [Suspect]
     Active Substance: LEUPROLIDE ACETATE
     Indication: VAGINAL HAEMORRHAGE
  2. LUPRON DEPOT [Suspect]
     Active Substance: LEUPROLIDE ACETATE
     Indication: UTERINE LEIOMYOMA
  3. LUPRON DEPOT [Suspect]
     Active Substance: LEUPROLIDE ACETATE
     Indication: ENDOMETRIOSIS
     Dates: start: 20140127

REACTIONS (3)
  - Hot flush [Recovering/Resolving]
  - Headache [Recovered/Resolved]
  - Vaginal haemorrhage [Recovered/Resolved]

NARRATIVE: CASE EVENT DATE: 2014
